FAERS Safety Report 9848928 (Version 1)
Quarter: 2013Q4

REPORT INFORMATION
  Report Type: Spontaneous
  Country: US (occurrence: None)
  Receive Date: 20131226
  Receipt Date: 20131226
  Transmission Date: 20140711
  Serious: Yes (Death)
  Sender: FDA-Public Use
  Company Number: PHEH2013US007074

PATIENT
  Age: 62 Year
  Sex: Female
  Weight: 155.6 kg

DRUGS (1)
  1. ZOMETA (ZOLEDRONATE) SOLUTION FOR INJECTION [Suspect]
     Indication: METASTASES TO BONE
     Dosage: 4MG/5ML, EVERY 28 DAYS, INTRAVENOUS
     Route: 042
     Dates: start: 20120813

REACTIONS (2)
  - Colon cancer metastatic [None]
  - Malignant neoplasm progression [None]
